FAERS Safety Report 9989475 (Version 2)
Quarter: 2014Q1

REPORT INFORMATION
  Report Type: Report from Study
  Country: US (occurrence: US)
  Receive Date: 20140310
  Receipt Date: 20140310
  Transmission Date: 20141002
  Serious: Yes (Hospitalization, Other)
  Sender: FDA-Public Use
  Company Number: US-ABBVIE-13P-163-1091676-00

PATIENT
  Age: 57 Year
  Sex: Male
  Weight: 79.9 kg

DRUGS (5)
  1. HUMIRA [Suspect]
     Indication: CROHN^S DISEASE
     Dates: start: 20120821, end: 20120821
  2. HUMIRA [Suspect]
     Dates: start: 20120904, end: 20120904
  3. HUMIRA [Suspect]
     Dates: start: 20120918, end: 20130301
  4. HUMIRA [Suspect]
     Dates: start: 20130515
  5. ASACOL [Concomitant]
     Indication: PRODUCT USED FOR UNKNOWN INDICATION
     Dates: start: 20130417

REACTIONS (2)
  - Cellulitis [Recovering/Resolving]
  - Foreign body [Recovered/Resolved]
